FAERS Safety Report 8372503-9 (Version None)
Quarter: 2012Q2

REPORT INFORMATION
  Report Type: 
  Country: None (occurrence: None)
  Receive Date: 20120521
  Receipt Date: 20120514
  Transmission Date: 20120825
  Serious: Yes (Other)
  Sender: FDA-Public Use
  Company Number: US-TEVA-338307USA

PATIENT
  Age: 43 Year
  Sex: Male
  Weight: 269 kg

DRUGS (6)
  1. LOSARTAN POTASSIUM [Concomitant]
     Route: 065
  2. HYDROCHLOROTHIAZIDE [Concomitant]
     Route: 065
  3. GLYBURIDE [Concomitant]
     Route: 065
  4. PHENTERMINE [Suspect]
     Indication: OBESITY
     Route: 065
  5. METFORMIN HCL [Concomitant]
     Route: 065
  6. DILTIAZEM [Concomitant]
     Route: 065

REACTIONS (1)
  - ATRIAL FIBRILLATION [None]
